FAERS Safety Report 23734927 (Version 2)
Quarter: 2024Q2

REPORT INFORMATION
  Report Type: Spontaneous
  Country: JO (occurrence: JO)
  Receive Date: 20240412
  Receipt Date: 20240416
  Transmission Date: 20240716
  Serious: Yes (Other)
  Sender: FDA-Public Use
  Company Number: JO-ABBVIE-5714015

PATIENT
  Age: 38 Year
  Sex: Female

DRUGS (6)
  1. TIMOLOL [Suspect]
     Active Substance: TIMOLOL
     Indication: Open angle glaucoma
     Route: 047
  2. TIMOLOL [Suspect]
     Active Substance: TIMOLOL
     Route: 047
  3. PREDNISOLONE ACETATE [Suspect]
     Active Substance: PREDNISOLONE ACETATE
     Indication: Intraocular pressure test abnormal
     Route: 047
  4. MOXIFLOXACIN [Concomitant]
     Active Substance: MOXIFLOXACIN
     Indication: Intraocular pressure test abnormal
     Route: 047
  5. DORZOLAMIDE [Suspect]
     Active Substance: DORZOLAMIDE
     Indication: Open angle glaucoma
     Route: 047
  6. DORZOLAMIDE [Suspect]
     Active Substance: DORZOLAMIDE
     Indication: Open angle glaucoma
     Route: 047

REACTIONS (3)
  - Open angle glaucoma [Recovering/Resolving]
  - Live birth [Unknown]
  - Maternal exposure during pregnancy [Unknown]
